FAERS Safety Report 13421509 (Version 2)
Quarter: 2017Q2

REPORT INFORMATION
  Report Type: Report from Study
  Country: US (occurrence: US)
  Receive Date: 20170410
  Receipt Date: 20170412
  Transmission Date: 20170830
  Serious: Yes (Other)
  Sender: FDA-Public Use
  Company Number: US-ROCHE-1914645

PATIENT

DRUGS (2)
  1. GEMCITABINE [Suspect]
     Active Substance: GEMCITABINE\GEMCITABINE HYDROCHLORIDE
     Indication: COLORECTAL CANCER METASTATIC
     Dosage: OVER 100 MINUTES, DAYS 1, 8.
     Route: 042
  2. CAPECITABINE. [Suspect]
     Active Substance: CAPECITABINE
     Indication: COLORECTAL CANCER METASTATIC
     Dosage: DAYS 1-14
     Route: 065

REACTIONS (3)
  - Neutrophil count abnormal [Unknown]
  - Pain [Unknown]
  - Granulocytes abnormal [Unknown]
